FAERS Safety Report 4714580-X (Version None)
Quarter: 2005Q3

REPORT INFORMATION
  Report Type: 
  Country: None (occurrence: None)
  Receive Date: 20050714
  Receipt Date: 20050705
  Transmission Date: 20060218
  Serious: Yes (Other)
  Sender: FDA-Public Use
  Company Number: US-MERCK-0507USA00438

PATIENT
  Sex: Male

DRUGS (5)
  1. VYTORIN [Suspect]
     Indication: BLOOD CHOLESTEROL INCREASED
     Route: 048
     Dates: start: 20050627
  2. INSULIN [Concomitant]
     Indication: DIABETES MELLITUS
     Route: 065
  3. CARDIZEM [Concomitant]
     Route: 065
  4. MICARDIS [Concomitant]
     Route: 065
  5. ZIAC [Concomitant]
     Route: 065

REACTIONS (6)
  - BLOOD GLUCOSE INCREASED [None]
  - CONVULSION [None]
  - DIZZINESS [None]
  - EAR DISCOMFORT [None]
  - HEADACHE [None]
  - VERTIGO [None]
